FAERS Safety Report 16632178 (Version 2)
Quarter: 2019Q3

REPORT INFORMATION
  Report Type: Spontaneous
  Country: ES (occurrence: ES)
  Receive Date: 20190725
  Receipt Date: 20190813
  Transmission Date: 20191004
  Serious: Yes (Hospitalization, Other)
  Sender: FDA-Public Use
  Company Number: ES-JNJFOC-20190719830

PATIENT
  Age: 37 Year
  Sex: Male

DRUGS (4)
  1. PREDNISONE. [Interacting]
     Active Substance: PREDNISONE
     Indication: ANKYLOSING SPONDYLITIS
     Dosage: 10 MG - 20 MG, QD
     Route: 065
  2. METHOTREXATE. [Interacting]
     Active Substance: METHOTREXATE
     Indication: ANKYLOSING SPONDYLITIS
     Dosage: 7.5 MG - 10 MG/QW
     Route: 065
  3. INFLIXIMAB, RECOMBINANT [Suspect]
     Active Substance: INFLIXIMAB
     Indication: ANKYLOSING SPONDYLITIS
     Dosage: 5 MG/KG, 9 DOSES
     Route: 042
  4. INFLIXIMAB, RECOMBINANT [Suspect]
     Active Substance: INFLIXIMAB
     Dosage: 3 MG/KG, 21 DOSES
     Route: 042

REACTIONS (6)
  - Anaemia [Recovered/Resolved]
  - Oropharyngeal plaque [Recovered/Resolved]
  - Nodule [Recovered/Resolved]
  - Antibody test positive [Recovered/Resolved]
  - Drug interaction [Recovered/Resolved]
  - Kaposi^s sarcoma [Recovered/Resolved]
